FAERS Safety Report 10888582 (Version 1)
Quarter: 2015Q1

REPORT INFORMATION
  Report Type: Report from Study
  Country: US (occurrence: US)
  Receive Date: 20150305
  Receipt Date: 20150305
  Transmission Date: 20150721
  Serious: Yes (Hospitalization)
  Sender: FDA-Public Use
  Company Number: US-GILEAD-2015-0140476

PATIENT
  Age: 58 Year
  Sex: Male

DRUGS (2)
  1. AMBRISENTAN [Suspect]
     Active Substance: AMBRISENTAN
     Indication: PRODUCT USED FOR UNKNOWN INDICATION
     Dosage: 10 MG, QD
     Route: 065
     Dates: start: 20141203
  2. TYVASO [Concomitant]
     Active Substance: TREPROSTINIL

REACTIONS (4)
  - Blood magnesium abnormal [Unknown]
  - Oxygen saturation decreased [Unknown]
  - Blood potassium abnormal [Unknown]
  - Blood pressure abnormal [Unknown]
